FAERS Safety Report 5828250-8 (Version None)
Quarter: 2008Q3

REPORT INFORMATION
  Report Type: 
  Country: None (occurrence: None)
  Receive Date: 20080729
  Receipt Date: 20080528
  Transmission Date: 20090109
  Serious: Yes (Death)
  Sender: FDA-Public Use
  Company Number: 2008019319

PATIENT

DRUGS (1)
  1. VISINE II EYE DROPS [Suspect]
     Indication: DRUG USE FOR UNKNOWN INDICATION
     Dosage: UNSPECIFIED,OPHTHALMIC
     Route: 047

REACTIONS (1)
  - DEATH [None]
